FAERS Safety Report 9416753 (Version 1)
Quarter: 2013Q3

REPORT INFORMATION
  Report Type: Spontaneous
  Country: PL (occurrence: None)
  Receive Date: 20130719
  Receipt Date: 20130719
  Transmission Date: 20140515
  Serious: Yes (Other)
  Sender: FDA-Public Use
  Company Number: 2013AP006634

PATIENT
  Age: 58 Year
  Sex: Female

DRUGS (1)
  1. CICLOSPORIN (CICLOSPORIN) [Suspect]
     Indication: PSORIASIS
     Route: 048
     Dates: start: 200909, end: 201009

REACTIONS (3)
  - Blood creatinine increased [None]
  - Blood urea increased [None]
  - Gamma-glutamyltransferase increased [None]
